FAERS Safety Report 9278170 (Version 1)
Quarter: 2013Q2

REPORT INFORMATION
  Report Type: Report from Study
  Country: BR (occurrence: BR)
  Receive Date: 20130508
  Receipt Date: 20130508
  Transmission Date: 20140414
  Serious: Yes (Hospitalization)
  Sender: FDA-Public Use
  Company Number: PHHY2013BR044178

PATIENT
  Sex: Female
  Weight: 54 kg

DRUGS (1)
  1. RITALIN LA [Suspect]
     Indication: ATTENTION DEFICIT/HYPERACTIVITY DISORDER
     Dosage: 1 DF, DAILY
     Dates: start: 201202

REACTIONS (1)
  - Strabismus [Recovered/Resolved]
